FAERS Safety Report 21900051 (Version 7)
Quarter: 2023Q2

REPORT INFORMATION
  Report Type: Report from Study
  Country: US (occurrence: US)
  Receive Date: 20230123
  Receipt Date: 20230517
  Transmission Date: 20230721
  Serious: Yes (Hospitalization, Other)
  Sender: FDA-Public Use
  Company Number: US-002147023-NVSC2023US012233

PATIENT
  Sex: Female

DRUGS (5)
  1. COSENTYX [Suspect]
     Active Substance: SECUKINUMAB
     Indication: Psoriasis
     Dosage: 150 MG, QW (FIRST LOADING DOSE)
     Route: 065
  2. COSENTYX [Suspect]
     Active Substance: SECUKINUMAB
     Indication: Psoriatic arthropathy
     Dosage: 150 MG, QW (SECOND LOADING DOSE)
     Route: 065
  3. COSENTYX [Suspect]
     Active Substance: SECUKINUMAB
     Dosage: 150 MG, QW (THIRD LOADING DOSE)
     Route: 065
  4. MELOXICAM [Suspect]
     Active Substance: MELOXICAM
     Indication: Product used for unknown indication
     Dosage: UNK
     Route: 065
  5. VIBREX [Concomitant]
     Indication: Product used for unknown indication
     Dosage: UNK
     Route: 065

REACTIONS (13)
  - Pyrexia [Unknown]
  - Psoriatic arthropathy [Unknown]
  - Pain [Unknown]
  - Pain in extremity [Unknown]
  - Peripheral swelling [Unknown]
  - Sepsis [Unknown]
  - Kidney infection [Unknown]
  - Illness [Unknown]
  - Upper respiratory tract infection [Unknown]
  - Psoriasis [Unknown]
  - Skin fissures [Unknown]
  - Skin haemorrhage [Unknown]
  - Urinary tract infection [Unknown]
